FAERS Safety Report 7548783-6 (Version None)
Quarter: 2011Q2

REPORT INFORMATION
  Report Type: 
  Country: None (occurrence: None)
  Receive Date: 20110615
  Receipt Date: 20110613
  Transmission Date: 20111010
  Serious: Yes (Life-Threatening)
  Sender: FDA-Public Use
  Company Number: GB-PFIZER INC-2011129582

PATIENT
  Age: 51 Year
  Sex: Female

DRUGS (3)
  1. MOVIPREP [Concomitant]
  2. LYRICA [Suspect]
     Indication: NEURALGIA
     Dosage: 50 MG, 3X/DAY
     Route: 048
     Dates: start: 20110419, end: 20110508
  3. FENTANYL [Concomitant]
     Dosage: 25 UG, ONCE PER HOUR
     Route: 062

REACTIONS (3)
  - SELF-INJURIOUS IDEATION [None]
  - SUICIDAL IDEATION [None]
  - PSYCHOTIC DISORDER [None]
